FAERS Safety Report 9843017 (Version 2)
Quarter: 2014Q1

REPORT INFORMATION
  Report Type: Spontaneous
  Country: JP (occurrence: JP)
  Receive Date: 20140124
  Receipt Date: 20140124
  Transmission Date: 20141002
  Serious: Yes (Death, Other)
  Sender: FDA-Public Use
  Company Number: JP-MPIJNJ-2013MPI000630

PATIENT
  Sex: 0

DRUGS (7)
  1. VELCADE [Suspect]
     Indication: PLASMA CELL MYELOMA
     Dosage: 1.3 MG/M2, QD (1 PER DAY PER INJECTION)
     Route: 042
     Dates: start: 200904, end: 200907
  2. DEXAMETHASONE [Suspect]
  3. THALIDOMIDE [Suspect]
     Indication: PLASMA CELL MYELOMA
     Route: 065
  4. LENALIDOMIDE [Suspect]
     Indication: PLASMA CELL MYELOMA
     Dosage: UNK
     Route: 048
  5. VINCRISTINE [Suspect]
     Indication: PLASMA CELL MYELOMA
     Dosage: UNK
     Route: 065
  6. CYCLOPHOSPHAMIDE [Suspect]
     Indication: PLASMA CELL MYELOMA
     Dosage: UNK
     Route: 065
  7. DOXORUBICIN [Suspect]
     Indication: PLASMA CELL MYELOMA
     Dosage: UNK
     Route: 065

REACTIONS (1)
  - Metastases to meninges [Fatal]
